FAERS Safety Report 16882370 (Version 1)
Quarter: 2019Q4

REPORT INFORMATION
  Report Type: Spontaneous
  Country: US (occurrence: US)
  Receive Date: 20191003
  Receipt Date: 20191003
  Transmission Date: 20200122
  Serious: No
  Sender: FDA-Public Use
  Company Number: US-ABBVIE-19S-163-2685761-00

PATIENT
  Sex: Female

DRUGS (4)
  1. NORVIR [Suspect]
     Active Substance: RITONAVIR
     Dosage: BRAND
     Route: 048
  2. NORVIR [Suspect]
     Active Substance: RITONAVIR
     Indication: PRODUCT USED FOR UNKNOWN INDICATION
     Dosage: BRAND
     Route: 048
     Dates: start: 2009, end: 201806
  3. RITONAVIR. [Suspect]
     Active Substance: RITONAVIR
     Dosage: MANUFACTURER: AUROBINDO
     Route: 065
     Dates: start: 201811
  4. RITONAVIR. [Suspect]
     Active Substance: RITONAVIR
     Indication: PRODUCT USED FOR UNKNOWN INDICATION
     Dosage: MANUFACTURER: ZYDUS
     Route: 065
     Dates: start: 20180615

REACTIONS (1)
  - Papule [Unknown]

NARRATIVE: CASE EVENT DATE: 2018
